FAERS Safety Report 11814089 (Version 1)
Quarter: 2015Q4

REPORT INFORMATION
  Report Type: Spontaneous
  Country: FR (occurrence: FR)
  Receive Date: 20151209
  Receipt Date: 20151209
  Transmission Date: 20160305
  Serious: Yes (Life-Threatening, Hospitalization)
  Sender: FDA-Public Use
  Company Number: FR-PFIZER INC-2015423095

PATIENT
  Age: 66 Year
  Sex: Female

DRUGS (8)
  1. XANAX [Suspect]
     Active Substance: ALPRAZOLAM
     Dosage: 0.50 MG, 3X/DAY
     Route: 048
     Dates: end: 20150408
  2. KLIPAL CODEINE [Suspect]
     Active Substance: ACETAMINOPHEN\CODEINE PHOSPHATE
     Dosage: [PARACETAMOL 600 MG]/[CODEINE PHOSPHATE 50 MG], 36 DF, SINGLE
     Route: 048
     Dates: start: 20150409, end: 20150409
  3. THERALENE [Concomitant]
     Active Substance: TRIMEPRAZINE
     Dosage: UNK
  4. XANAX [Suspect]
     Active Substance: ALPRAZOLAM
     Dosage: 20 TABLETS OF 0.5MG
     Route: 048
     Dates: start: 20150409, end: 20150409
  5. PAROXETINE [Suspect]
     Active Substance: PAROXETINE\PAROXETINE HYDROCHLORIDE
     Dosage: 40 MG, DAILY
     Dates: end: 20150408
  6. KLIPAL CODEINE [Suspect]
     Active Substance: ACETAMINOPHEN\CODEINE PHOSPHATE
     Dosage: [PARACETAMOL 600 MG]/[CODEINE PHOSPHATE 50 MG], 3 DF, DAILY
     Route: 048
     Dates: end: 20150408
  7. PAROXETINE [Suspect]
     Active Substance: PAROXETINE\PAROXETINE HYDROCHLORIDE
     Dosage: UNK
     Dates: start: 20150409, end: 20150409
  8. LORMETAZEPAM [Concomitant]
     Active Substance: LORMETAZEPAM
     Dosage: UNK

REACTIONS (5)
  - Intestinal ischaemia [Recovered/Resolved with Sequelae]
  - Vasoplegia syndrome [Recovered/Resolved with Sequelae]
  - Hepatitis fulminant [Recovered/Resolved with Sequelae]
  - Intentional overdose [Recovered/Resolved with Sequelae]
  - Loss of consciousness [Recovered/Resolved with Sequelae]

NARRATIVE: CASE EVENT DATE: 201504
